FAERS Safety Report 4265776-5 (Version None)
Quarter: 2004Q1

REPORT INFORMATION
  Report Type: 
  Country: None (occurrence: None)
  Receive Date: 20040107
  Receipt Date: 20040107
  Transmission Date: 20041129
  Serious: Yes (Life-Threatening, Hospitalization)
  Sender: FDA-Public Use
  Company Number: None

PATIENT
  Age: 16 Year
  Sex: Female
  Weight: 40 kg

DRUGS (4)
  1. IBUPROFEN [Suspect]
     Indication: HEADACHE
     Dates: start: 20030901, end: 20030914
  2. IBUPROFEN [Suspect]
     Indication: SINUS PAIN
     Dates: start: 20030901, end: 20030914
  3. PSEUDOEPHEDRINE HCL [Suspect]
     Indication: SINUS DISORDER
     Dates: start: 20030901, end: 20030914
  4. BULL/AMP [Concomitant]

REACTIONS (8)
  - ALANINE AMINOTRANSFERASE INCREASED [None]
  - CONVULSION [None]
  - DIARRHOEA [None]
  - HEADACHE [None]
  - HYPERTENSION [None]
  - NAUSEA [None]
  - RENAL FAILURE ACUTE [None]
  - VOMITING [None]
